FAERS Safety Report 18094619 (Version 2)
Quarter: 2020Q3

REPORT INFORMATION
  Report Type: Spontaneous
  Country: SE (occurrence: SE)
  Receive Date: 20200730
  Receipt Date: 20200825
  Transmission Date: 20201103
  Serious: Yes (Hospitalization)
  Sender: FDA-Public Use
  Company Number: SE-ROCHE-2650991

PATIENT
  Age: 71 Year
  Sex: Female

DRUGS (14)
  1. OMEPRAZOLE. [Concomitant]
     Active Substance: OMEPRAZOLE
  2. DIMOR [Concomitant]
     Active Substance: LOPERAMIDE
  3. ATORVASTATIN MYLAN [Concomitant]
     Active Substance: ATORVASTATIN
  4. DOCETAXEL. [Suspect]
     Active Substance: DOCETAXEL
     Indication: BREAST CANCER
     Route: 065
  5. LORATADIN RATIOPHARM [Concomitant]
  6. TRAJENTA [Concomitant]
     Active Substance: LINAGLIPTIN
  7. FURIX RETARD [Concomitant]
     Active Substance: FUROSEMIDE
     Dosage: 1X2
  8. KALEORID [Concomitant]
     Active Substance: POTASSIUM CHLORIDE
  9. NORMORIX MITE [Concomitant]
     Active Substance: AMILORIDE HYDROCHLORIDE\HYDROCHLOROTHIAZIDE
  10. TRASTUZUMAB. [Suspect]
     Active Substance: TRASTUZUMAB
     Indication: BREAST CANCER
     Route: 042
  11. VENTOLINE [Concomitant]
     Active Substance: ALBUTEROL
  12. ULTIBRO BREEZHALER [Concomitant]
     Active Substance: GLYCOPYRRONIUM\INDACATEROL
  13. PULMICORT TURBUHALER [Concomitant]
     Active Substance: BUDESONIDE
  14. KININ [Concomitant]
     Active Substance: QUININE HYDROCHLORIDE

REACTIONS (3)
  - Gastrointestinal toxicity [Recovered/Resolved]
  - Diarrhoea [Recovered/Resolved]
  - Colitis [Recovered/Resolved]

NARRATIVE: CASE EVENT DATE: 20200522
